FAERS Safety Report 10439817 (Version 3)
Quarter: 2014Q3

REPORT INFORMATION
  Report Type: Report from Study
  Country: GB (occurrence: GB)
  Receive Date: 20140908
  Receipt Date: 20140918
  Transmission Date: 20150326
  Serious: Yes (Other)
  Sender: FDA-Public Use
  Company Number: GB-ASTRAZENECA-2014SE60846

PATIENT
  Age: 24649 Day
  Sex: Male
  Weight: 91 kg

DRUGS (4)
  1. STUDY PROCEDURE [Suspect]
     Active Substance: INVESTIGATIONAL PRODUCT
     Indication: ADENOCARCINOMA OF COLON
     Route: 065
  2. VANDETANIB. [Suspect]
     Active Substance: VANDETANIB
     Indication: ADENOCARCINOMA OF COLON
     Route: 048
     Dates: start: 20140804, end: 20140827
  3. AZD6244 [Suspect]
     Active Substance: SELUMETINIB
     Indication: ADENOCARCINOMA OF COLON
     Route: 048
     Dates: start: 20140721, end: 20140810
  4. AZD6244 [Suspect]
     Active Substance: SELUMETINIB
     Indication: ADENOCARCINOMA OF COLON
     Dosage: DOSE REDUCED
     Route: 048
     Dates: start: 20140823, end: 20140827

REACTIONS (1)
  - Detachment of retinal pigment epithelium [Recovering/Resolving]

NARRATIVE: CASE EVENT DATE: 20140811
